FAERS Safety Report 11079005 (Version 1)
Quarter: 2015Q2

REPORT INFORMATION
  Report Type: Spontaneous
  Country: BR (occurrence: BR)
  Receive Date: 20150430
  Receipt Date: 20150430
  Transmission Date: 20150821
  Serious: Yes (Hospitalization)
  Sender: FDA-Public Use
  Company Number: BR-ASTRAZENECA-2015SE38843

PATIENT
  Age: 58 Year
  Sex: Female
  Weight: 87 kg

DRUGS (7)
  1. ABLOK PLUS [Suspect]
     Active Substance: ATENOLOL\CHLORTHALIDONE
     Indication: BLOOD PRESSURE ABNORMAL
     Dosage: 50 + 12,5 MG, EVERY MORNING
     Route: 048
     Dates: start: 1996
  2. PRISTIQ EXTENDED RELEASE [Concomitant]
     Active Substance: DESVENLAFAXINE SUCCINATE
     Indication: DEPRESSION
     Route: 048
     Dates: start: 2009
  3. FORXIGA [Suspect]
     Active Substance: DAPAGLIFLOZIN
     Indication: WEIGHT DECREASED
     Route: 048
     Dates: start: 201504
  4. ONGLYZA [Suspect]
     Active Substance: SAXAGLIPTIN HYDROCHLORIDE
     Indication: BLOOD GLUCOSE INCREASED
     Dosage: 5 MG EVERY DAY, AFTER LUNCH
     Route: 048
  5. XENICAL [Concomitant]
     Active Substance: ORLISTAT
     Indication: WEIGHT DECREASED
     Dosage: SPORADICALLY
     Route: 048
  6. FORXIGA [Suspect]
     Active Substance: DAPAGLIFLOZIN
     Indication: WEIGHT DECREASED
     Route: 048
     Dates: start: 201411, end: 201502
  7. SYNTHROID [Concomitant]
     Active Substance: LEVOTHYROXINE SODIUM
     Indication: HYPOTHYROIDISM
     Dosage: EVERY MORNING
     Route: 048
     Dates: start: 1981

REACTIONS (8)
  - Product use issue [Not Recovered/Not Resolved]
  - Breast swelling [Recovered/Resolved]
  - Depression [Unknown]
  - Road traffic accident [Recovered/Resolved with Sequelae]
  - Fibrosis [Unknown]
  - Blood glucose increased [Recovered/Resolved]
  - Peripheral swelling [Recovered/Resolved]
  - Weight decreased [Not Recovered/Not Resolved]

NARRATIVE: CASE EVENT DATE: 2009
